FAERS Safety Report 10197115 (Version 2)
Quarter: 2014Q2

REPORT INFORMATION
  Report Type: Spontaneous
  Country: CA (occurrence: CA)
  Receive Date: 20140527
  Receipt Date: 20140610
  Transmission Date: 20141212
  Serious: Yes (Other)
  Sender: FDA-Public Use
  Company Number: CA-GE HEALTHCARE MEDICAL DIAGNOSTICS-VISP-PR-1405S-0220

PATIENT
  Age: 46 Year
  Sex: Female

DRUGS (4)
  1. VISIPAQUE [Suspect]
     Indication: SPLENIC LESION
     Route: 042
     Dates: start: 20140512, end: 20140512
  2. VISIPAQUE [Suspect]
     Indication: DIAGNOSTIC PROCEDURE
     Dosage: DOSE NOT REPORTED
     Route: 048
     Dates: start: 20140512, end: 20140512
  3. METFORMIN [Concomitant]
  4. RAMIPRIL [Concomitant]

REACTIONS (2)
  - Visual impairment [Recovered/Resolved]
  - Dyspnoea [Recovered/Resolved]
